FAERS Safety Report 11071646 (Version 1)
Quarter: 2015Q2

REPORT INFORMATION
  Report Type: Spontaneous
  Country: US (occurrence: None)
  Receive Date: 20150427
  Receipt Date: 20150427
  Transmission Date: 20150821
  Serious: Yes (Hospitalization)
  Sender: FDA-Public Use
  Company Number: None

PATIENT
  Age: 5 Year
  Sex: Female
  Weight: 19.05 kg

DRUGS (3)
  1. NASONEX [Suspect]
     Active Substance: MOMETASONE FUROATE
     Indication: SEASONAL ALLERGY
     Dosage: 2 SPRAYS IN EACH NOSTRIL ONCE DAILY NOSE
     Route: 045
  2. MIRALAX [Concomitant]
     Active Substance: POLYETHYLENE GLYCOL 3350
  3. CLARITIN [Concomitant]
     Active Substance: LORATADINE

REACTIONS (11)
  - Mood altered [None]
  - Depressed mood [None]
  - Aggression [None]
  - Seizure [None]
  - Incoherent [None]
  - VIIth nerve paralysis [None]
  - Anger [None]
  - Abnormal behaviour [None]
  - Speech disorder [None]
  - Hallucination, auditory [None]
  - Muscle disorder [None]

NARRATIVE: CASE EVENT DATE: 20150314
